APPROVED DRUG PRODUCT: BETADERM
Active Ingredient: BETAMETHASONE VALERATE
Strength: EQ 0.1% BASE
Dosage Form/Route: CREAM;TOPICAL
Application: N018839 | Product #001
Applicant: TJ ROACO LTD
Approved: Jun 30, 1983 | RLD: No | RS: No | Type: DISCN